FAERS Safety Report 7804365-X (Version None)
Quarter: 2011Q4

REPORT INFORMATION
  Report Type: 
  Country: None (occurrence: None)
  Receive Date: 20111010
  Receipt Date: 20110928
  Transmission Date: 20120403
  Serious: Yes (Other)
  Sender: FDA-Public Use
  Company Number: US-BAYER-201017524NA

PATIENT
  Age: 30 Year
  Sex: Female
  Weight: 77.098 kg

DRUGS (4)
  1. YAZ [Suspect]
     Dosage: UNK UNK, UNK
     Route: 048
     Dates: start: 20080201, end: 20081201
  2. ANTIBIOTICS [Concomitant]
  3. ALLEGRA-D [FEXOFENADINE HYDROCHLORIDE,PSEUDOEPHEDRINE] [Concomitant]
  4. YAZ [Suspect]
     Indication: CONTRACEPTION
     Dosage: UNK
     Dates: start: 20070718, end: 20081201

REACTIONS (6)
  - DYSPNOEA [None]
  - CHEST PAIN [None]
  - ABDOMINAL PAIN UPPER [None]
  - CHOLELITHIASIS [None]
  - VOMITING [None]
  - DEPRESSIVE SYMPTOM [None]
